FAERS Safety Report 13287090 (Version 1)
Quarter: 2017Q1

REPORT INFORMATION
  Report Type: Spontaneous
  Country: US (occurrence: US)
  Receive Date: 20170302
  Receipt Date: 20170302
  Transmission Date: 20170428
  Serious: No
  Sender: FDA-Public Use
  Company Number: US-PFIZER INC-2017088755

PATIENT
  Sex: Male

DRUGS (2)
  1. LEVAQUIN [Interacting]
     Active Substance: LEVOFLOXACIN
     Dosage: 500 MG, UNK
  2. XELJANZ [Suspect]
     Active Substance: TOFACITINIB CITRATE
     Dosage: 5 MG, UNK

REACTIONS (2)
  - Drug interaction [Unknown]
  - Medication error [Unknown]
